FAERS Safety Report 5927518-4 (Version None)
Quarter: 2008Q4

REPORT INFORMATION
  Report Type: 
  Country: None (occurrence: None)
  Receive Date: 20081023
  Receipt Date: 20080922
  Transmission Date: 20090506
  Serious: Yes (Hospitalization)
  Sender: FDA-Public Use
  Company Number: UA-ROCHE-471984

PATIENT
  Sex: Female
  Weight: 63 kg

DRUGS (3)
  1. CAPECITABINE [Suspect]
     Indication: BREAST CANCER METASTATIC
     Dosage: 4200 MG, UNK
     Route: 065
     Dates: start: 20060925
  2. BLINDED BEVACIZUMAB [Suspect]
     Dosage: 972 MG, Q3W
     Route: 042
     Dates: start: 20060925
  3. BLINDED PLACEBO [Suspect]
     Dosage: 972 MG, Q3W
     Route: 042
     Dates: start: 20060925

REACTIONS (1)
  - GASTRITIS EROSIVE [None]
